FAERS Safety Report 8361988-X (Version None)
Quarter: 2012Q2

REPORT INFORMATION
  Report Type: 
  Country: None (occurrence: None)
  Receive Date: 20120515
  Receipt Date: 20120511
  Transmission Date: 20120825
  Serious: No
  Sender: FDA-Public Use
  Company Number: US-TEVA-337964USA

PATIENT
  Sex: Female
  Weight: 68.1 kg

DRUGS (5)
  1. IBUPROFEN (ADVIL) [Concomitant]
     Indication: BACK PAIN
  2. NAPROXEN (ALEVE) [Concomitant]
     Indication: BACK PAIN
  3. PLAN B ONE-STEP [Suspect]
     Indication: POST COITAL CONTRACEPTION
     Dosage: 1.5 MILLIGRAM;
     Route: 048
     Dates: start: 20120330, end: 20120330
  4. NAPROXEN (ALEVE) [Concomitant]
     Indication: HEADACHE
     Route: 048
  5. IBUPROFEN (ADVIL) [Concomitant]
     Indication: HEADACHE
     Route: 048

REACTIONS (2)
  - MENSTRUATION IRREGULAR [None]
  - MENSTRUATION DELAYED [None]
